FAERS Safety Report 9467393 (Version 1)
Quarter: 2013Q3

REPORT INFORMATION
  Report Type: Spontaneous
  Country: US (occurrence: None)
  Receive Date: 20130819
  Receipt Date: 20130819
  Transmission Date: 20140515
  Serious: No
  Sender: FDA-Public Use
  Company Number: None

PATIENT
  Age: 57 Year
  Sex: Female
  Weight: 100.25 kg

DRUGS (1)
  1. SYNTHROID [Suspect]
     Indication: HYPOTHYROIDISM
     Dosage: SYNTHROID 100MCG  1 QAM  PO
     Route: 048
     Dates: start: 20130409

REACTIONS (3)
  - Blood thyroid stimulating hormone increased [None]
  - Product colour issue [None]
  - Suspected counterfeit product [None]
